FAERS Safety Report 15767989 (Version 1)
Quarter: 2018Q4

REPORT INFORMATION
  Report Type: Spontaneous
  Country: US (occurrence: US)
  Receive Date: 20181227
  Receipt Date: 20181227
  Transmission Date: 20190205
  Serious: Yes (Other)
  Sender: FDA-Public Use
  Company Number: US-SUNOVION-2018SUN005043

PATIENT
  Age: 87 Year
  Sex: Female

DRUGS (1)
  1. LONHALA MAGNAIR [Suspect]
     Active Substance: GLYCOPYRROLATE
     Dosage: 25 MCG/ML 1ML, BID
     Route: 055
     Dates: start: 20181217

REACTIONS (4)
  - Ophthalmic herpes zoster [Unknown]
  - Visual impairment [Unknown]
  - Dry eye [Unknown]
  - Vision blurred [Unknown]

NARRATIVE: CASE EVENT DATE: 20181217
